FAERS Safety Report 6433850-0 (Version None)
Quarter: 2009Q4

REPORT INFORMATION
  Report Type: 
  Country: None (occurrence: None)
  Receive Date: 20091110
  Receipt Date: 20091028
  Transmission Date: 20100525
  Serious: Yes (Life-Threatening, Hospitalization)
  Sender: FDA-Public Use
  Company Number: JP-AMGEN-US345323

PATIENT
  Sex: Male
  Weight: 66 kg

DRUGS (6)
  1. ENBREL [Suspect]
     Indication: RHEUMATOID ARTHRITIS
     Route: 058
     Dates: start: 20070827, end: 20071001
  2. VOLTAREN [Concomitant]
     Route: 054
     Dates: end: 20071001
  3. MUCOSTA [Concomitant]
     Route: 048
     Dates: end: 20071001
  4. GLAKAY [Concomitant]
     Route: 048
     Dates: end: 20071001
  5. RINDERON [Concomitant]
     Route: 048
     Dates: end: 20071012
  6. LOXONIN [Concomitant]
     Route: 048
     Dates: end: 20071012

REACTIONS (13)
  - ARACHNOIDITIS [None]
  - CARDIAC TAMPONADE [None]
  - CONDITION AGGRAVATED [None]
  - GASTRIC ULCER HAEMORRHAGE [None]
  - LOSS OF CONSCIOUSNESS [None]
  - PACHYMENINGITIS [None]
  - PAIN [None]
  - PERICARDIAL EFFUSION [None]
  - PLEURAL EFFUSION [None]
  - PURPURA [None]
  - PYREXIA [None]
  - RHEUMATOID ARTHRITIS [None]
  - VASCULITIS [None]
